FAERS Safety Report 8315667-5 (Version None)
Quarter: 2012Q2

REPORT INFORMATION
  Report Type: 
  Country: None (occurrence: None)
  Receive Date: 20120426
  Receipt Date: 20120419
  Transmission Date: 20120825
  Serious: Yes (Other)
  Sender: FDA-Public Use
  Company Number: US-FRI-1000029923

PATIENT
  Age: 60 Year
  Sex: Male

DRUGS (2)
  1. FLOMAX [Suspect]
  2. DALIRESP [Suspect]

REACTIONS (1)
  - ANGIOEDEMA [None]
